FAERS Safety Report 7235191-0 (Version None)
Quarter: 2011Q1

REPORT INFORMATION
  Report Type: 
  Country: None (occurrence: None)
  Receive Date: 20110120
  Receipt Date: 20110110
  Transmission Date: 20110831
  Serious: No
  Sender: FDA-Public Use
  Company Number: US-B.I. PHARMACEUTICALS,INC./RIDGEFIELD-2011-BP-01038BP

PATIENT
  Age: 79 Year
  Sex: Male

DRUGS (2)
  1. PRADAXA [Suspect]
     Dosage: 300 MG
  2. COUMADIN [Concomitant]

REACTIONS (2)
  - PETECHIAE [None]
  - SKIN DISCOLOURATION [None]
